FAERS Safety Report 15613152 (Version 2)
Quarter: 2018Q4

REPORT INFORMATION
  Report Type: Spontaneous
  Country: JP (occurrence: JP)
  Receive Date: 20181113
  Receipt Date: 20181129
  Transmission Date: 20190205
  Serious: Yes (Hospitalization, Other)
  Sender: FDA-Public Use
  Company Number: JP-ELI_LILLY_AND_COMPANY-JP201811003317AA

PATIENT
  Age: 87 Year
  Sex: Female
  Weight: 40 kg

DRUGS (23)
  1. LOXOPROFEN [Concomitant]
     Active Substance: LOXOPROFEN
     Dosage: 100 MG, UNK
     Route: 003
  2. TAKECAB [Concomitant]
     Active Substance: VONOPRAZAN FUMURATE
     Dosage: 20 DF, UNK
     Dates: start: 20180519, end: 20180521
  3. PICOSULFATE NA [Concomitant]
     Active Substance: SODIUM PICOSULFATE
     Indication: CONSTIPATION
     Dosage: UNK, PRN
     Dates: start: 20180521
  4. MIYA-BM [Concomitant]
     Active Substance: CLOSTRIDIUM BUTYRICUM SPORES STRAIN M-55
     Dosage: 3 G, UNK
     Dates: start: 20180523
  5. BROTIZOLAM [Concomitant]
     Active Substance: BROTIZOLAM
     Dosage: 0.25 DF, UNK
     Dates: end: 20180503
  6. ETODOLAC. [Concomitant]
     Active Substance: ETODOLAC
     Dosage: 400 MG, UNK
     Dates: end: 20180503
  7. VOLTAREN [Concomitant]
     Active Substance: DICLOFENAC SODIUM
     Indication: PAIN
     Dosage: 12.5 G, PRN
     Route: 054
  8. FAMOTIDINE. [Concomitant]
     Active Substance: FAMOTIDINE
     Dosage: 20 UNK, UNK
     Dates: start: 20180504
  9. CRAVIT [Concomitant]
     Active Substance: LEVOFLOXACIN
     Dosage: UNK
     Route: 047
     Dates: start: 20180517
  10. AMLODIPINE BESILATE [Concomitant]
     Active Substance: AMLODIPINE BESYLATE
     Dosage: UNK
     Dates: start: 20180504
  11. ETIZOLAM [Concomitant]
     Active Substance: ETIZOLAM
     Dosage: 0.5 DF, UNK
     Dates: start: 20180504
  12. BROTIZOLAM [Concomitant]
     Active Substance: BROTIZOLAM
     Dosage: 0.25 DF, UNK
     Dates: start: 20180504
  13. BAYASPIRIN [Concomitant]
     Active Substance: ASPIRIN
     Dosage: 100 DF, UNK
     Dates: start: 20180504
  14. REBAMIPIDE [Concomitant]
     Active Substance: REBAMIPIDE
     Dosage: UNK
     Dates: end: 20180503
  15. AMLODIPINE BESILATE [Concomitant]
     Active Substance: AMLODIPINE BESYLATE
     Dosage: 5 MG, UNK
     Dates: end: 20180503
  16. ENALAPRIL MALEATE. [Concomitant]
     Active Substance: ENALAPRIL MALEATE
     Dosage: 5 MG, UNK
     Dates: end: 20180503
  17. ETODOLAC. [Concomitant]
     Active Substance: ETODOLAC
     Dosage: 200 DF, UNK
     Dates: start: 20180504
  18. REBAMIPIDE [Concomitant]
     Active Substance: REBAMIPIDE
     Dosage: 100 DF, UNK
     Dates: start: 20180504
  19. FORTEO [Suspect]
     Active Substance: TERIPARATIDE
     Indication: OSTEOPOROSIS
     Dosage: UNK
     Route: 058
     Dates: start: 20180427, end: 20180525
  20. BUFFERIN A [ACETYLSALICYLIC ACID;ALUMINIUM GL [Concomitant]
     Dosage: 81 MG, UNK
     Dates: end: 20180503
  21. ETIZOLAM [Concomitant]
     Active Substance: ETIZOLAM
     Dosage: 0.5 DF, UNK
     Dates: end: 20180503
  22. SODIUM ALGINATE [Concomitant]
     Active Substance: SODIUM ALGINATE
     Dosage: 60 MG, UNK
     Dates: start: 20180519, end: 20180521
  23. RENIVACE [Concomitant]
     Active Substance: ENALAPRIL
     Dosage: 5 G, UNK
     Dates: start: 20180504

REACTIONS (3)
  - Pelvic fracture [Unknown]
  - Eosinophil count increased [Recovering/Resolving]
  - White blood cell count increased [Recovering/Resolving]

NARRATIVE: CASE EVENT DATE: 20180430
